FAERS Safety Report 15462609 (Version 2)
Quarter: 2018Q4

REPORT INFORMATION
  Report Type: Spontaneous
  Country: IT (occurrence: IT)
  Receive Date: 20181004
  Receipt Date: 20181101
  Transmission Date: 20190204
  Serious: Yes (Hospitalization)
  Sender: FDA-Public Use
  Company Number: IT-VELOXIS PHARMACEUTICALS, INC.-2018VELIT1203

PATIENT
  Age: 61 Year
  Sex: Female

DRUGS (1)
  1. TACROLIMUS. [Suspect]
     Active Substance: TACROLIMUS
     Indication: LIVER TRANSPLANT
     Dosage: 4.5 MG, BID
     Route: 065

REACTIONS (8)
  - Biliary fistula [Recovering/Resolving]
  - Septic shock [Recovering/Resolving]
  - Clostridial infection [Recovering/Resolving]
  - Cholangitis [Recovering/Resolving]
  - Cytomegalovirus infection [Recovering/Resolving]
  - Enterococcus test positive [Recovering/Resolving]
  - Escherichia infection [Recovering/Resolving]
  - Intentional product misuse [Unknown]
